FAERS Safety Report 15347584 (Version 1)
Quarter: 2018Q3

REPORT INFORMATION
  Report Type: Spontaneous
  Country: PL (occurrence: PL)
  Receive Date: 20180904
  Receipt Date: 20180904
  Transmission Date: 20181010
  Serious: Yes (Other)
  Sender: FDA-Public Use
  Company Number: PL-BAYER-2018-164737

PATIENT
  Age: 26 Year
  Sex: Female

DRUGS (2)
  1. BETAFERON [Suspect]
     Active Substance: INTERFERON BETA-1B
     Indication: MULTIPLE SCLEROSIS
     Dosage: UNK
     Dates: start: 200911
  2. PARACETAMOL [Concomitant]
     Active Substance: ACETAMINOPHEN
     Indication: PREMEDICATION
     Dosage: 500 MG, UNK
     Route: 048

REACTIONS (11)
  - Pyrexia [Recovered/Resolved]
  - Lymphocyte count decreased [None]
  - Multiple sclerosis relapse [Recovered/Resolved]
  - Expanded disability status scale score increased [Recovered/Resolved]
  - White blood cell count decreased [None]
  - Influenza like illness [Recovered/Resolved]
  - Malaise [Recovered/Resolved]
  - Hepatic enzyme increased [None]
  - Multiple sclerosis [None]
  - Chills [Recovered/Resolved]
  - Injection site erythema [Recovered/Resolved]

NARRATIVE: CASE EVENT DATE: 200912
